FAERS Safety Report 6879788-6 (Version None)
Quarter: 2010Q3

REPORT INFORMATION
  Report Type: 
  Country: None (occurrence: None)
  Receive Date: 20100728
  Receipt Date: 20100715
  Transmission Date: 20110219
  Serious: Yes (Other)
  Sender: FDA-Public Use
  Company Number: US-ELI_LILLY_AND_COMPANY-US201007003886

PATIENT
  Age: 85 Year
  Sex: Female

DRUGS (1)
  1. EVISTA [Suspect]
     Dosage: UNK, UNKNOWN

REACTIONS (4)
  - FEMUR FRACTURE [None]
  - HIP FRACTURE [None]
  - POLYMYALGIA RHEUMATICA [None]
  - WOUND INFECTION STAPHYLOCOCCAL [None]
